FAERS Safety Report 8135967-1 (Version None)
Quarter: 2012Q1

REPORT INFORMATION
  Report Type: 
  Country: None (occurrence: None)
  Receive Date: 20120214
  Receipt Date: 20120207
  Transmission Date: 20120608
  Serious: Yes (Hospitalization)
  Sender: FDA-Public Use
  Company Number: US-BAYER-2011-027741

PATIENT
  Age: 30 Year
  Sex: Female
  Weight: 96 kg

DRUGS (7)
  1. YASMIN [Suspect]
     Indication: PREMENSTRUAL SYNDROME
     Dosage: UNK
     Dates: start: 20030101, end: 20090301
  2. FLUOXETINE [Concomitant]
     Dosage: 40 MG, BID
     Route: 048
  3. ETODOLAC [Concomitant]
     Dosage: 400 MG, UNK
     Route: 048
  4. ADDERALL 5 [Concomitant]
     Dosage: 20 MG, QD
     Route: 048
  5. TRAMADOL HCL [Concomitant]
     Dosage: 50 MG, PRN
     Route: 048
  6. ALLEGRA [Concomitant]
  7. YAZ [Suspect]
     Indication: PREMENSTRUAL SYNDROME
     Dosage: UNK
     Dates: start: 20030101, end: 20090301

REACTIONS (1)
  - DEEP VEIN THROMBOSIS [None]
